APPROVED DRUG PRODUCT: SERTRALINE HYDROCHLORIDE
Active Ingredient: SERTRALINE HYDROCHLORIDE
Strength: EQ 25MG BASE
Dosage Form/Route: TABLET;ORAL
Application: A077864 | Product #001
Applicant: HIKMA PHARMACEUTICALS
Approved: Aug 10, 2009 | RLD: No | RS: No | Type: DISCN